FAERS Safety Report 4372908-7 (Version None)
Quarter: 2004Q2

REPORT INFORMATION
  Report Type: 
  Country: None (occurrence: None)
  Receive Date: 20040603
  Receipt Date: 20040525
  Transmission Date: 20050107
  Serious: Yes (Hospitalization)
  Sender: FDA-Public Use
  Company Number: 24049

PATIENT
  Age: 39 Year
  Sex: Female

DRUGS (4)
  1. FLECAINIDE ACETATE [Suspect]
     Indication: ATRIAL FIBRILLATION
     Dosage: 200 MG (100 MG, 2 IN 1 DAY(S)) ORAL
     Route: 048
     Dates: start: 20040212, end: 20040305
  2. PREVISCAN (FLUINDIONE) [Concomitant]
     Indication: ATRIAL FIBRILLATION
     Dosage: 0.75 DOSAGE FORMS (0.75 DOSAGE FORMS, 1 IN 1 DAY(S)) ORAL
     Route: 048
     Dates: start: 20030501, end: 20040305
  3. SECTRAL [Suspect]
     Indication: ATRIAL FIBRILLATION
     Dosage: 200 MG (200 MG, 1 IN 1 DAY(S)) ORAL
     Route: 048
     Dates: start: 20040212, end: 20040305
  4. MINESSE (GESTODENE, ETHINYLESTRADIOL) [Concomitant]

REACTIONS (8)
  - ABDOMINAL PAIN LOWER [None]
  - ASTHENIA [None]
  - CHOLESTASIS [None]
  - CHROMATURIA [None]
  - CYTOLYTIC HEPATITIS [None]
  - FAECES DISCOLOURED [None]
  - GENERAL PHYSICAL HEALTH DETERIORATION [None]
  - LEUKOCYTOSIS [None]
